FAERS Safety Report 24533406 (Version 1)
Quarter: 2024Q4

REPORT INFORMATION
  Report Type: Spontaneous
  Country: US (occurrence: US)
  Receive Date: 20241022
  Receipt Date: 20241022
  Transmission Date: 20250114
  Serious: No
  Sender: BAYER HEALTHCARE LLC
  Company Number: US-BAYER-2024A147805

PATIENT
  Sex: Male

DRUGS (3)
  1. ALEVE [Suspect]
     Active Substance: NAPROXEN SODIUM
     Indication: Arthralgia
  2. ALEVE [Suspect]
     Active Substance: NAPROXEN SODIUM
     Indication: Movement disorder
  3. XELJANZ XR [Concomitant]
     Active Substance: TOFACITINIB CITRATE
     Indication: Rheumatoid arthritis
     Dosage: 1 DF, QD
     Route: 048

REACTIONS (1)
  - Drug effective for unapproved indication [Unknown]
